FAERS Safety Report 25007305 (Version 1)
Quarter: 2025Q1

REPORT INFORMATION
  Report Type: Report from Study
  Country: CA (occurrence: CA)
  Receive Date: 20250225
  Receipt Date: 20250225
  Transmission Date: 20250409
  Serious: Yes (Hospitalization)
  Sender: ABBVIE
  Company Number: None

PATIENT
  Age: 69 Year
  Sex: Male

DRUGS (34)
  1. CITALOPRAM [Suspect]
     Active Substance: CITALOPRAM
     Indication: Product used for unknown indication
     Dosage: OVERDOSE: 80 MG OF CITALOPRAM
     Route: 048
  2. CITALOPRAM [Suspect]
     Active Substance: CITALOPRAM
     Indication: Product used for unknown indication
     Dosage: DAILY DOSE: 80.0 MG, FORM: UNKNOWN
     Route: 048
  3. ADVAIR HFA [Suspect]
     Active Substance: FLUTICASONE PROPIONATE\SALMETEROL XINAFOATE
     Indication: Asthma
     Route: 065
  4. ASPIRIN [Suspect]
     Active Substance: ASPIRIN
     Indication: Product used for unknown indication
     Dosage: 50 MILLIGRAM
     Route: 065
  5. ASPIRIN [Suspect]
     Active Substance: ASPIRIN
     Indication: Product used for unknown indication
     Dosage: DAILY DOSE: 100.0 MG
     Route: 065
  6. ATIVAN [Suspect]
     Active Substance: LORAZEPAM
     Indication: Product used for unknown indication
     Route: 065
  7. BUPROPION HYDROCHLORIDE [Suspect]
     Active Substance: BUPROPION HYDROCHLORIDE
     Indication: Product used for unknown indication
     Route: 065
  8. BUPROPION [Suspect]
     Active Substance: BUPROPION
     Indication: Product used for unknown indication
     Route: 065
  9. COMBIVENT [Suspect]
     Active Substance: ALBUTEROL SULFATE\IPRATROPIUM BROMIDE
     Indication: Product used for unknown indication
     Route: 065
  10. GLYCOPYRROLATE [Suspect]
     Active Substance: GLYCOPYRROLATE
     Indication: Product used for unknown indication
     Dosage: 1 PUFF (2 PUFFS DAILY)
  11. GLYCOPYRROLATE [Suspect]
     Active Substance: GLYCOPYRROLATE
     Indication: Product used for unknown indication
     Dosage: DAILY DOSE: 100.0 ?G
     Route: 065
  12. MONTELUKAST [Suspect]
     Active Substance: MONTELUKAST
     Indication: Product used for unknown indication
     Dosage: DAILY DOSE: 2.0 DF
     Route: 065
  13. NASONEX [Suspect]
     Active Substance: MOMETASONE FUROATE
     Indication: Product used for unknown indication
     Dosage: 50 MILLIGRAM
     Route: 065
  14. NASONEX [Suspect]
     Active Substance: MOMETASONE FUROATE
     Indication: Product used for unknown indication
     Dosage: DAILY DOSE: 100.0 MG, FORM: SPRAY, METERED
     Route: 065
  15. PANTOPRAZOLE SODIUM [Suspect]
     Active Substance: PANTOPRAZOLE SODIUM
     Indication: Product used for unknown indication
     Dosage: 40 MILLIGRAM
     Route: 065
  16. PANTOPRAZOLE SODIUM [Suspect]
     Active Substance: PANTOPRAZOLE SODIUM
     Indication: Product used for unknown indication
     Dosage: DAILY DOSE: 80.0 MG
     Route: 065
  17. ROSUVASTATIN CALCIUM [Suspect]
     Active Substance: ROSUVASTATIN CALCIUM
     Indication: Product used for unknown indication
     Dosage: 10 MILLIGRAM
  18. ROSUVASTATIN CALCIUM [Suspect]
     Active Substance: ROSUVASTATIN CALCIUM
     Indication: Product used for unknown indication
     Dosage: DAILY DOSE: 20.0 MG
     Route: 048
  19. ALBUTEROL SULFATE [Suspect]
     Active Substance: ALBUTEROL SULFATE
     Indication: Asthma
     Dosage: 2 PUFFS 4 TIMES DAILY (8 PUFFS DAILY)
     Route: 065
  20. ALBUTEROL SULFATE [Suspect]
     Active Substance: ALBUTEROL SULFATE
     Indication: Asthma
     Route: 065
  21. SODIUM BICARBONATE\SODIUM CHLORIDE [Suspect]
     Active Substance: SODIUM BICARBONATE\SODIUM CHLORIDE
     Indication: Product used for unknown indication
     Dosage: DAILY DOSE: 2.0 DF
     Route: 065
  22. THEOPHYLLINE [Suspect]
     Active Substance: THEOPHYLLINE
     Indication: Product used for unknown indication
     Dosage: DAILY DOSE: 600.0 MG
     Route: 065
  23. TIOTROPIUM [Suspect]
     Active Substance: TIOTROPIUM
     Indication: Product used for unknown indication
     Route: 065
  24. MONTELUKAST SODIUM [Suspect]
     Active Substance: MONTELUKAST SODIUM
     Indication: Product used for unknown indication
     Dosage: 10 MILLIGRAM
  25. VENTOLIN [Suspect]
     Active Substance: ALBUTEROL SULFATE
     Indication: Product used for unknown indication
     Route: 065
  26. VENTOLIN HFA [Suspect]
     Active Substance: ALBUTEROL SULFATE
     Indication: Product used for unknown indication
     Dosage: DAILY DOSE: 400.0 MG
     Route: 065
  27. ALBUTEROL SULFATE [Suspect]
     Active Substance: ALBUTEROL SULFATE
     Indication: Product used for unknown indication
     Dosage: 6 MILLIGRAM
     Route: 065
  28. ALBUTEROL SULFATE [Suspect]
     Active Substance: ALBUTEROL SULFATE
     Indication: Product used for unknown indication
     Dosage: DAILY DOSE: 12.0 MG
     Route: 065
  29. ZENHALE [Suspect]
     Active Substance: FORMOTEROL FUMARATE\MOMETASONE FUROATE
     Indication: Product used for unknown indication
     Dosage: DAILY DOSE: 2.0 DF
     Route: 065
  30. ZENHALE [Suspect]
     Active Substance: FORMOTEROL FUMARATE\MOMETASONE FUROATE
     Indication: Product used for unknown indication
     Dosage: DAILY DOSE: 2.0 DF
     Route: 065
  31. NUCALA [Suspect]
     Active Substance: MEPOLIZUMAB
     Indication: Asthma
     Dosage: 100 MILLIGRAM
     Route: 042
  32. PREDNISONE [Suspect]
     Active Substance: PREDNISONE
     Indication: Asthma
     Route: 065
  33. VENTOLIN [Suspect]
     Active Substance: ALBUTEROL SULFATE
     Indication: Asthma
     Route: 065
  34. ALBUTEROL [Suspect]
     Active Substance: ALBUTEROL
     Indication: Product used for unknown indication
     Dosage: DAILY DOSE: 400.0 MG
     Route: 065

REACTIONS (27)
  - Asthma [Recovered/Resolved]
  - Full blood count abnormal [Recovered/Resolved]
  - Chronic obstructive pulmonary disease [Recovered/Resolved]
  - Adjustment disorder [Recovered/Resolved]
  - Chest discomfort [Recovered/Resolved]
  - Discomfort [Recovered/Resolved]
  - Drug intolerance [Recovered/Resolved]
  - Hypercholesterolaemia [Recovered/Resolved]
  - Loss of personal independence in daily activities [Recovered/Resolved]
  - Sleep disorder due to a general medical condition [Recovering/Resolving]
  - Cough [Recovered/Resolved]
  - Chest discomfort [Recovered/Resolved]
  - Productive cough [Recovered/Resolved]
  - Wheezing [Recovered/Resolved]
  - Rhinitis allergic [Recovered/Resolved]
  - Depressed mood [Recovered/Resolved]
  - Gastrooesophageal reflux disease [Recovered/Resolved]
  - Obesity [Recovered/Resolved]
  - Dyspnoea [Recovering/Resolving]
  - Therapeutic product effect incomplete [Recovered/Resolved]
  - Discomfort [Recovered/Resolved]
  - Cough [Recovered/Resolved]
  - Anxiety [Recovered/Resolved]
  - Overdose [Unknown]
  - Asthma [Recovered/Resolved]
  - Overdose [Unknown]
  - Inappropriate schedule of product administration [Unknown]
